FAERS Safety Report 13765580 (Version 7)
Quarter: 2019Q2

REPORT INFORMATION
  Report Type: Report from Study
  Country: US (occurrence: US)
  Receive Date: 20170718
  Receipt Date: 20190618
  Transmission Date: 20190711
  Serious: Yes (Hospitalization)
  Sender: FDA-Public Use
  Company Number: US-ACTELION-A-US2015-127047

PATIENT
  Age: 87 Year
  Sex: Female

DRUGS (12)
  1. PREDNISONE. [Concomitant]
     Active Substance: PREDNISONE
  2. METFORMIN [Concomitant]
     Active Substance: METFORMIN HYDROCHLORIDE
  3. ALLEGRA [Concomitant]
     Active Substance: FEXOFENADINE HYDROCHLORIDE
  4. TYVASO [Concomitant]
     Active Substance: TREPROSTINIL
     Dosage: 72 MCG, QID
     Route: 065
     Dates: start: 201504
  5. PRILOSEC [Concomitant]
     Active Substance: OMEPRAZOLE MAGNESIUM
  6. FOSAMAX [Concomitant]
     Active Substance: ALENDRONATE SODIUM
  7. TRACLEER [Suspect]
     Active Substance: BOSENTAN
     Indication: PULMONARY ARTERIAL HYPERTENSION
     Dosage: 125 MG, BID
     Route: 048
     Dates: start: 20100215
  8. SILDENAFIL. [Concomitant]
     Active Substance: SILDENAFIL
  9. LINZESS [Concomitant]
     Active Substance: LINACLOTIDE
  10. ALLOPURINOL. [Concomitant]
     Active Substance: ALLOPURINOL
  11. XANAX [Concomitant]
     Active Substance: ALPRAZOLAM
  12. PRAMIPEXOLE. [Concomitant]
     Active Substance: PRAMIPEXOLE

REACTIONS (9)
  - Vertebral foraminal stenosis [Recovering/Resolving]
  - Pulmonary arterial pressure increased [Unknown]
  - Neuralgia [Recovering/Resolving]
  - Dyspnoea [Not Recovered/Not Resolved]
  - Candida infection [Recovered/Resolved]
  - Hypoacusis [Unknown]
  - Dyspepsia [Unknown]
  - Back pain [Recovering/Resolving]
  - Throat irritation [Unknown]

NARRATIVE: CASE EVENT DATE: 20160713
